FAERS Safety Report 8797394 (Version 2)
Quarter: 2015Q1

REPORT INFORMATION
  Report Type: Report from Study
  Country: US (occurrence: US)
  Receive Date: 20120919
  Receipt Date: 20150317
  Transmission Date: 20150721
  Serious: Yes (Death)
  Sender: FDA-Public Use
  Company Number: US-ROCHE-1123213

PATIENT
  Sex: Male
  Weight: 91 kg

DRUGS (2)
  1. AVASTIN [Suspect]
     Active Substance: BEVACIZUMAB
     Indication: MALIGNANT RESPIRATORY TRACT NEOPLASM
     Route: 065
     Dates: start: 20050627
  2. TARCEVA [Suspect]
     Active Substance: ERLOTINIB HYDROCHLORIDE
     Indication: PRODUCT USED FOR UNKNOWN INDICATION
     Route: 065

REACTIONS (2)
  - Death [Fatal]
  - Product use issue [Unknown]
